FAERS Safety Report 5611015-X (Version None)
Quarter: 2008Q1

REPORT INFORMATION
  Report Type: 
  Country: None (occurrence: None)
  Receive Date: 20080201
  Receipt Date: 20080128
  Transmission Date: 20080703
  Serious: Yes (Life-Threatening, Hospitalization)
  Sender: FDA-Public Use
  Company Number: B0500210A

PATIENT
  Age: 37 Year
  Sex: Female

DRUGS (4)
  1. PAXIL [Suspect]
     Indication: POST-TRAUMATIC STRESS DISORDER
     Route: 048
     Dates: start: 20040801, end: 20060502
  2. MEILAX [Concomitant]
  3. MYSLEE [Concomitant]
  4. WYPAX [Concomitant]
     Dates: start: 20050706

REACTIONS (7)
  - DISSOCIATIVE AMNESIA [None]
  - FATIGUE [None]
  - FLAT AFFECT [None]
  - HOMICIDAL IDEATION [None]
  - NAUSEA [None]
  - PSYCHOSOMATIC DISEASE [None]
  - SKIN ODOUR ABNORMAL [None]
